FAERS Safety Report 10192860 (Version 2)
Quarter: 2014Q2

REPORT INFORMATION
  Report Type: Spontaneous
  Country: US (occurrence: US)
  Receive Date: 20140523
  Receipt Date: 20140611
  Transmission Date: 20141212
  Serious: Yes (Other)
  Sender: FDA-Public Use
  Company Number: US-ASTRAZENECA-2014SE33259

PATIENT
  Age: 340 Day
  Sex: Male

DRUGS (1)
  1. SYNAGIS [Suspect]
     Route: 030
     Dates: start: 201401, end: 20140410

REACTIONS (2)
  - Bronchial hyperreactivity [Recovered/Resolved]
  - Pneumonia [Recovered/Resolved]
